FAERS Safety Report 6761512-9 (Version None)
Quarter: 2010Q2

REPORT INFORMATION
  Report Type: 
  Country: None (occurrence: None)
  Receive Date: 20100607
  Receipt Date: 20100524
  Transmission Date: 20101027
  Serious: Yes (Hospitalization)
  Sender: FDA-Public Use
  Company Number: 2010AL003060

PATIENT
  Age: 24 Year
  Sex: Female

DRUGS (1)
  1. RISPERIDONE [Suspect]
     Indication: HEADACHE
     Dosage: 27 MG; X1; PO
     Route: 048

REACTIONS (2)
  - DYSTONIA [None]
  - HEART RATE INCREASED [None]
